FAERS Safety Report 7594723-3 (Version None)
Quarter: 2011Q3

REPORT INFORMATION
  Report Type: 
  Country: None (occurrence: None)
  Receive Date: 20110707
  Receipt Date: 20110627
  Transmission Date: 20111222
  Serious: No
  Sender: FDA-Public Use
  Company Number: US-JNJFOC-20110700992

PATIENT
  Sex: Male
  Weight: 113.4 kg

DRUGS (13)
  1. INVEGA SUSTENNA [Suspect]
     Indication: AUTISM
     Route: 030
     Dates: start: 20091101, end: 20100101
  2. COGENTIN [Concomitant]
     Indication: PRODUCT USED FOR UNKNOWN INDICATION
     Route: 065
  3. VISTARIL [Concomitant]
     Indication: SLEEP DISORDER THERAPY
     Route: 065
     Dates: start: 20100901
  4. PROMETHAZINE [Concomitant]
     Indication: NAUSEA
     Route: 065
  5. LOPID [Concomitant]
     Indication: BLOOD TRIGLYCERIDES INCREASED
     Route: 065
  6. NEXIUM [Concomitant]
     Indication: GASTROOESOPHAGEAL REFLUX DISEASE
     Route: 065
  7. INVEGA SUSTENNA [Suspect]
     Route: 030
     Dates: start: 20100101
  8. FLURAZEPAM [Concomitant]
     Indication: ANXIETY
     Route: 065
  9. VITAMIN D [Concomitant]
     Indication: VITAMIN D DEFICIENCY
     Dosage: 2000 U
     Route: 048
     Dates: start: 20100101
  10. INVEGA SUSTENNA [Suspect]
     Route: 030
     Dates: start: 20100101
  11. DEPAKOTE [Concomitant]
     Indication: AUTISM
     Route: 065
     Dates: start: 20090101, end: 20090101
  12. INVEGA SUSTENNA [Suspect]
     Indication: SCHIZOPHRENIA
     Route: 030
     Dates: start: 20091101, end: 20100101
  13. TRILEPTAL [Concomitant]
     Indication: AUTISM
     Route: 048
     Dates: start: 20090101, end: 20090101

REACTIONS (6)
  - DENTAL CARIES [None]
  - VITAMIN D DEFICIENCY [None]
  - PRODUCT QUALITY ISSUE [None]
  - VOMITING [None]
  - ABNORMAL LOSS OF WEIGHT [None]
  - PERSONALITY CHANGE [None]
